FAERS Safety Report 4569450-7 (Version None)
Quarter: 2005Q1

REPORT INFORMATION
  Report Type: 
  Country: None (occurrence: None)
  Receive Date: 20050201
  Receipt Date: 20050120
  Transmission Date: 20050727
  Serious: Yes (Hospitalization)
  Sender: FDA-Public Use
  Company Number: 192936

PATIENT
  Age: 36 Year
  Sex: Female
  Weight: 70.3075 kg

DRUGS (4)
  1. AVONEX [Suspect]
     Indication: MULTIPLE SCLEROSIS
     Dosage: 30 UG; QW; IM
     Route: 030
     Dates: start: 19990101, end: 20030801
  2. AVONEX [Suspect]
     Indication: MULTIPLE SCLEROSIS
     Dosage: 30 UG; QW; IM
     Route: 030
     Dates: start: 20030801, end: 20040206
  3. CELEXA [Concomitant]
  4. MIRCETTE [Concomitant]

REACTIONS (10)
  - LOCAL SWELLING [None]
  - NASOPHARYNGITIS [None]
  - OEDEMA MOUTH [None]
  - OEDEMA PERIPHERAL [None]
  - OROPHARYNGEAL SWELLING [None]
  - PRURITUS [None]
  - SWELLING FACE [None]
  - SWOLLEN TONGUE [None]
  - URTICARIA [None]
  - WHITE BLOOD CELL COUNT INCREASED [None]
